FAERS Safety Report 5086111-9 (Version None)
Quarter: 2006Q3

REPORT INFORMATION
  Report Type: 
  Country: None (occurrence: None)
  Receive Date: 20060818
  Receipt Date: 20060803
  Transmission Date: 20061208
  Serious: Yes (Hospitalization)
  Sender: FDA-Public Use
  Company Number: HU200607003676

PATIENT
  Age: 23 Year
  Sex: Male

DRUGS (1)
  1. OLANZAPINE [Suspect]
     Indication: SCHIZOPHRENIA
     Dosage: 5 MG, DAILY 1/D), ORAL
     Route: 048
     Dates: start: 20050401

REACTIONS (1)
  - THROMBOSIS [None]
